FAERS Safety Report 24791689 (Version 1)
Quarter: 2024Q4

REPORT INFORMATION
  Report Type: Spontaneous
  Country: EU (occurrence: EU)
  Receive Date: 20241231
  Receipt Date: 20241231
  Transmission Date: 20250115
  Serious: Yes (Other)
  Sender: BAUSCH AND LOMB
  Company Number: None

PATIENT
  Age: 90 Year
  Sex: Female
  Weight: 50 kg

DRUGS (5)
  1. TROPICAMIDE [Suspect]
     Active Substance: TROPICAMIDE
     Indication: Ophthalmological examination
     Dosage: EYE DROPS, 5 MG/ML (MILLIGRAM PER MILLILITER) OCULAR USE
     Route: 047
     Dates: start: 20241111
  2. BISOPROLOL [Concomitant]
     Active Substance: BISOPROLOL
     Indication: Product used for unknown indication
     Dosage: TABLET, 1,25 MG (MILLIGRAM)
     Route: 048
  3. ACENOCOUMAROL [Concomitant]
     Active Substance: ACENOCOUMAROL
     Indication: Product used for unknown indication
     Dosage: TABLET, 1 MG (MILLIGRAM)
     Route: 048
  4. FUROSEMIDE [Concomitant]
     Active Substance: FUROSEMIDE
     Indication: Product used for unknown indication
     Dosage: TABLET, 20 MG (MILLIGRAM)
     Route: 048
  5. HYPROMELLOSES [Concomitant]
     Active Substance: HYPROMELLOSES
     Indication: Product used for unknown indication
     Dosage: EYE DROPS, 3.2 MG/ML (MILLIGRAM PER MILLILITER)
     Route: 047

REACTIONS (9)
  - Oropharyngeal blistering [Recovering/Resolving]
  - Dry throat [Recovering/Resolving]
  - Malaise [Recovering/Resolving]
  - Fatigue [Recovering/Resolving]
  - Balance disorder [Recovering/Resolving]
  - Condition aggravated [Recovering/Resolving]
  - Confusional state [Recovered/Resolved]
  - Headache [Recovering/Resolving]
  - Dry mouth [Recovering/Resolving]
